FAERS Safety Report 10177121 (Version 1)
Quarter: 2014Q2

REPORT INFORMATION
  Report Type: Spontaneous
  Country: US (occurrence: None)
  Receive Date: 20140515
  Receipt Date: 20140515
  Transmission Date: 20141212
  Serious: Yes (Other)
  Sender: FDA-Public Use
  Company Number: None

PATIENT
  Age: 61 Year
  Sex: Male
  Weight: 109.32 kg

DRUGS (3)
  1. QUETIAPINE [Suspect]
     Indication: HALLUCINATION
     Dosage: 2 TABS QHS/BEDTIME
     Route: 048
     Dates: start: 20140509, end: 20140513
  2. VITAMIN E [Concomitant]
  3. PERPHENIZINE [Concomitant]

REACTIONS (4)
  - Product substitution issue [None]
  - Hallucinations, mixed [None]
  - Head titubation [None]
  - Disturbance in attention [None]
